FAERS Safety Report 9342630 (Version 2)
Quarter: 2013Q2

REPORT INFORMATION
  Report Type: Spontaneous
  Country: FR (occurrence: FR)
  Receive Date: 20130611
  Receipt Date: 20130628
  Transmission Date: 20140414
  Serious: Yes (Hospitalization)
  Sender: FDA-Public Use
  Company Number: FR-TEVA-411413ISR

PATIENT
  Age: 82 Year
  Sex: Female

DRUGS (12)
  1. FUROSEMIDE TEVA?40 MG,COMPRIM? S?CABLE [Suspect]
     Indication: ISCHAEMIC CARDIOMYOPATHY
     Dosage: 1 TABLET DAILY; IN THE MORNING
     Route: 048
     Dates: start: 2013, end: 20130608
  2. METFORMIN 850 MG [Concomitant]
     Indication: DIABETES MELLITUS
  3. KARDEGIC?NOS 75 MG [Concomitant]
  4. LANTUS?NOS [Concomitant]
     Indication: DIABETES MELLITUS
  5. SPASFON? NOS [Concomitant]
  6. SMECTA?NOS [Concomitant]
  7. DOLIPRANE?NOS [Concomitant]
  8. TEMESTA? [Concomitant]
  9. BISOCE? NOS [Concomitant]
  10. PROCORALAN?NOS [Concomitant]
  11. MATRIFEN?NOS [Concomitant]
  12. DUROGESIC?NOS [Concomitant]

REACTIONS (2)
  - Cardiac failure [Recovering/Resolving]
  - Pulmonary oedema [Recovering/Resolving]
